FAERS Safety Report 8884972 (Version 1)
Quarter: 2012Q4

REPORT INFORMATION
  Report Type: 
  Country: JP (occurrence: JP)
  Receive Date: 20121105
  Receipt Date: 20121105
  Transmission Date: 20130627
  Serious: Yes (Other)
  Sender: FDA-Public Use
  Company Number: JP-MERCK-1211JPN000561

PATIENT
  Age: 47 Year
  Sex: Male

DRUGS (1)
  1. GASTER [Suspect]
     Route: 030

REACTIONS (1)
  - Rhabdomyolysis [Unknown]
